FAERS Safety Report 16706737 (Version 1)
Quarter: 2019Q3

REPORT INFORMATION
  Report Type: Spontaneous
  Country: US (occurrence: US)
  Receive Date: 20190628
  Receipt Date: 20190628
  Transmission Date: 20191004
  Serious: Yes (Other)
  Sender: FDA-Public Use
  Company Number: None

PATIENT
  Age: 66 Year
  Sex: Female
  Weight: 63.5 kg

DRUGS (1)
  1. TUNA OMEGA-3 OIL 8070 [Suspect]
     Active Substance: OMEGA-3-ACID ETHYL ESTERS
     Indication: INSOMNIA
     Dosage: 1 PERLE ONCE ORAL
     Route: 048
     Dates: start: 20190515

REACTIONS (5)
  - Vomiting [None]
  - Nausea [None]
  - Middle insomnia [None]
  - Dizziness [None]
  - Abdominal pain upper [None]

NARRATIVE: CASE EVENT DATE: 20190516
